FAERS Safety Report 20324018 (Version 1)
Quarter: 2022Q1

REPORT INFORMATION
  Report Type: Spontaneous
  Country: GB (occurrence: GB)
  Receive Date: 20220111
  Receipt Date: 20220111
  Transmission Date: 20220423
  Serious: Yes (Death, Other)
  Sender: FDA-Public Use
  Company Number: GB-DSJP-DSE-2022-100739

PATIENT
  Age: 86 Year
  Sex: Female

DRUGS (2)
  1. EDOXABAN TOSYLATE [Interacting]
     Active Substance: EDOXABAN TOSYLATE
     Indication: Product used for unknown indication
     Dosage: UNK
  2. ASPIRIN [Interacting]
     Active Substance: ASPIRIN
     Indication: Antiplatelet therapy
     Dosage: UNK

REACTIONS (4)
  - Gastrointestinal haemorrhage [Fatal]
  - Drug interaction [Fatal]
  - Off label use [Fatal]
  - Creatinine renal clearance decreased [Unknown]
